FAERS Safety Report 24800285 (Version 1)
Quarter: 2025Q1

REPORT INFORMATION
  Report Type: Spontaneous
  Country: US (occurrence: None)
  Receive Date: 20250101
  Receipt Date: 20250101
  Transmission Date: 20250409
  Serious: Yes (Hospitalization)
  Sender: FDA-CTU
  Company Number: None

PATIENT
  Age: 60 Year
  Sex: Male
  Weight: 74.25 kg

DRUGS (2)
  1. REPATHA [Suspect]
     Active Substance: EVOLOCUMAB
     Indication: Blood cholesterol increased
  2. Aliskeran [Concomitant]

REACTIONS (3)
  - Muscle tightness [None]
  - Tendon rupture [None]
  - Mobility decreased [None]

NARRATIVE: CASE EVENT DATE: 20240122
